FAERS Safety Report 15084762 (Version 1)
Quarter: 2018Q2

REPORT INFORMATION
  Report Type: Spontaneous
  Country: US (occurrence: US)
  Receive Date: 20180608
  Receipt Date: 20180608
  Transmission Date: 20180711
  Serious: Yes (Other)
  Sender: FDA-Public Use
  Company Number: None

PATIENT
  Age: 65 Year
  Sex: Male
  Weight: 78.75 kg

DRUGS (8)
  1. FISH OIL [Concomitant]
     Active Substance: FISH OIL
  2. COQ10 [Concomitant]
     Active Substance: UBIDECARENONE
  3. LEVOFLOXACIN 500 MG [Suspect]
     Active Substance: LEVOFLOXACIN
     Indication: URINARY TRACT INFECTION
     Dosage: ?          QUANTITY:1 CAPSULE(S);?
     Route: 048
     Dates: start: 20180504, end: 20180506
  4. CALCIUM [Concomitant]
     Active Substance: CALCIUM
  5. BABY ASA [Concomitant]
     Active Substance: ASPIRIN
  6. MGSO4 [Concomitant]
     Active Substance: MAGNESIUM SULFATE
  7. VITAMIN B COMPLEX [Concomitant]
     Active Substance: CYANOCOBALAMIN\DEXPANTHENOL\NIACINAMIDE\PYRIDOXINE HYDROCHLORIDE\RIBOFLAVIN 5^-PHOSPHATE SODIUM\THIAMINE HYDROCHLORIDE\VITAMIN B COMPLEX
  8. CURCUMMIN [Concomitant]

REACTIONS (3)
  - Pain in extremity [None]
  - Tendonitis [None]
  - Product quality issue [None]

NARRATIVE: CASE EVENT DATE: 20180504
